FAERS Safety Report 16677096 (Version 1)
Quarter: 2019Q3

REPORT INFORMATION
  Report Type: Spontaneous
  Country: IT (occurrence: IT)
  Receive Date: 20190807
  Receipt Date: 20190807
  Transmission Date: 20191004
  Serious: Yes (Other)
  Sender: FDA-Public Use
  Company Number: IT-PURDUE-GBR-2019-0068774

PATIENT
  Age: 17 Year
  Sex: Female

DRUGS (3)
  1. SUFENTANIL [Suspect]
     Active Substance: SUFENTANIL
     Indication: PROCEDURAL PAIN
     Dosage: UNK
     Route: 041
  2. NON-PMN MORPHINE SULFATE [Suspect]
     Active Substance: MORPHINE SULFATE
     Indication: PROCEDURAL PAIN
     Dosage: 2 MG/ML, UNK
     Route: 065
  3. BACLOFEN. [Suspect]
     Active Substance: BACLOFEN
     Indication: SCOLIOSIS
     Dosage: UNK
     Route: 037

REACTIONS (2)
  - Product use in unapproved indication [Unknown]
  - Oxygen saturation [Unknown]
